FAERS Safety Report 4716013-6 (Version None)
Quarter: 2005Q3

REPORT INFORMATION
  Report Type: 
  Country: None (occurrence: None)
  Receive Date: 20050718
  Receipt Date: 20050707
  Transmission Date: 20060218
  Serious: Yes (Hospitalization)
  Sender: FDA-Public Use
  Company Number: JNJFOC-20050606619

PATIENT
  Age: 14 Year
  Sex: Male
  Weight: 62 kg

DRUGS (3)
  1. LAMOTRIGINE [Suspect]
     Indication: EPILEPSY
     Dosage: 250MG PER DAY
     Route: 048
     Dates: start: 20050501
  2. TOPIRAMATE [Suspect]
     Indication: EPILEPSY
     Dosage: 500MG PER DAY
     Route: 048
     Dates: start: 20040101
  3. NO CONCURRENT MEDICATION [Concomitant]

REACTIONS (1)
  - HYPOGLYCAEMIA [None]
